FAERS Safety Report 23525142 (Version 1)
Quarter: 2024Q1

REPORT INFORMATION
  Report Type: Spontaneous
  Country: JP (occurrence: JP)
  Receive Date: 20240215
  Receipt Date: 20240215
  Transmission Date: 20240409
  Serious: Yes (Death, Other)
  Sender: FDA-Public Use
  Company Number: JP-aspen-SDZ2023JP022985AA

PATIENT
  Sex: Female

DRUGS (1)
  1. XYLOCAINE [Suspect]
     Active Substance: LIDOCAINE HYDROCHLORIDE
     Indication: Arteriovenous fistula operation
     Dosage: UNK
     Route: 065

REACTIONS (3)
  - Death [Fatal]
  - Shock [Unknown]
  - Physical deconditioning [Unknown]
